FAERS Safety Report 4903368-2 (Version None)
Quarter: 2006Q1

REPORT INFORMATION
  Report Type: 
  Country: None (occurrence: None)
  Receive Date: 20060206
  Receipt Date: 20060206
  Transmission Date: 20060701
  Serious: Yes (Life-Threatening, Hospitalization)
  Sender: FDA-Public Use
  Company Number: None

PATIENT
  Sex: Female
  Weight: 91.6266 kg

DRUGS (1)
  1. SILDENAFIL (REVATIO) 20 MG PFIZER [Suspect]
     Indication: PULMONARY HYPERTENSION
     Dosage: 20MG TID PO
     Route: 048
     Dates: start: 20050401

REACTIONS (1)
  - SUBDURAL HAEMATOMA [None]
